FAERS Safety Report 4972880-2 (Version None)
Quarter: 2006Q2

REPORT INFORMATION
  Report Type: 
  Country: None (occurrence: None)
  Receive Date: 20060410
  Receipt Date: 20060320
  Transmission Date: 20061013
  Serious: No
  Sender: FDA-Public Use
  Company Number: US200603005448

PATIENT
  Age: 61 Year
  Sex: Female
  Weight: 81.6 kg

DRUGS (10)
  1. ZYPREXA [Suspect]
     Dosage: 10 + 20 MG, DAILY (1/D)
     Dates: start: 20011009, end: 20030110
  2. ZYPREXA [Suspect]
     Dosage: 10 + 20 MG, DAILY (1/D)
     Dates: start: 20030110, end: 20040501
  3. ZYPREXA [Suspect]
     Dosage: 10 + 20 MG, DAILY (1/D)
     Dates: start: 20040501, end: 20050929
  4. ZYPREXA [Suspect]
     Dosage: 10 + 20 MG, DAILY (1/D)
     Dates: start: 20050929
  5. TEMAZEPAM [Concomitant]
  6. TOPAMAX [Concomitant]
  7. AMITRIPTYLINE (AMITRIPTYLINE) [Concomitant]
  8. RISPERIDONE [Concomitant]
  9. REMERON [Concomitant]
  10. LEXAPRO             /USA/(ESCITALOPRAM) [Concomitant]

REACTIONS (3)
  - ECCHYMOSIS [None]
  - EYE HAEMORRHAGE [None]
  - WEIGHT INCREASED [None]
